FAERS Safety Report 8171727-3 (Version None)
Quarter: 2012Q1

REPORT INFORMATION
  Report Type: 
  Country: None (occurrence: None)
  Receive Date: 20120228
  Receipt Date: 20120224
  Transmission Date: 20120608
  Serious: Yes (Other)
  Sender: FDA-Public Use
  Company Number: CHPA2012SE003490

PATIENT
  Age: 52 Year
  Sex: Female

DRUGS (1)
  1. NICOTINE [Suspect]
     Dosage: UNK, FOR SEVERAL YEARS

REACTIONS (2)
  - DRUG DEPENDENCE [None]
  - INCORRECT DRUG ADMINISTRATION DURATION [None]
